FAERS Safety Report 22277050 (Version 1)
Quarter: 2023Q2

REPORT INFORMATION
  Report Type: Spontaneous
  Country: CN (occurrence: CN)
  Receive Date: 20230503
  Receipt Date: 20230503
  Transmission Date: 20230722
  Serious: Yes (Hospitalization, Other)
  Sender: FDA-Public Use
  Company Number: CN-BoehringerIngelheim-2023-BI-233897

PATIENT
  Age: 91 Year
  Sex: Male
  Weight: 78.5 kg

DRUGS (2)
  1. ALTEPLASE [Suspect]
     Active Substance: ALTEPLASE
     Indication: Thrombolysis
     Dosage: WAS INTRAVENOUSLY INJECTED WITHIN 1 MINUTE
     Route: 042
     Dates: start: 20230103
  2. ALTEPLASE [Suspect]
     Active Substance: ALTEPLASE
     Dosage: MG WAS CONTINUOUSLY MICROPUMP FOR 1 HOUR,.
     Route: 042
     Dates: end: 20230103

REACTIONS (3)
  - Coagulopathy [Recovering/Resolving]
  - Gingival bleeding [Recovering/Resolving]
  - Off label use [Unknown]

NARRATIVE: CASE EVENT DATE: 20230103
